FAERS Safety Report 9514019 (Version 1)
Quarter: 2013Q3

REPORT INFORMATION
  Report Type: Spontaneous
  Country: US (occurrence: US)
  Receive Date: 20130910
  Receipt Date: 20130910
  Transmission Date: 20140515
  Serious: No
  Sender: FDA-Public Use
  Company Number: US-UPSHER-SMITH LABORATORIES, INC.-12002518

PATIENT
  Sex: Female
  Weight: 63.49 kg

DRUGS (4)
  1. OXYBUTYNIN CHLORIDE [Suspect]
     Indication: BLADDER DISORDER
     Dosage: 2 MG, BID
     Dates: start: 2012
  2. VISICOL [Suspect]
     Indication: BLADDER DISORDER
     Dosage: UNK, QD
     Dates: end: 2012
  3. ENABLEX /01760401/ [Suspect]
     Indication: BLADDER DISORDER
     Dosage: UNK, QD
     Dates: start: 2012, end: 2012
  4. NONE REPORTED [Concomitant]

REACTIONS (1)
  - Drug ineffective [Unknown]
